FAERS Safety Report 10252218 (Version 3)
Quarter: 2015Q2

REPORT INFORMATION
  Report Type: Spontaneous
  Country: US (occurrence: US)
  Receive Date: 20140623
  Receipt Date: 20150529
  Transmission Date: 20150821
  Serious: Yes (Death, Life-Threatening, Hospitalization, Other)
  Sender: FDA-Public Use
  Company Number: US-009507513-1406USA009660

PATIENT
  Sex: Male
  Weight: 98.87 kg

DRUGS (2)
  1. JANUVIA [Suspect]
     Active Substance: SITAGLIPTIN PHOSPHATE
     Indication: TYPE 2 DIABETES MELLITUS
     Dosage: 50 MG, BID
     Route: 048
     Dates: end: 20120327
  2. JANUMET [Suspect]
     Active Substance: METFORMIN HYDROCHLORIDE\SITAGLIPTIN PHOSPHATE
     Indication: TYPE 2 DIABETES MELLITUS
     Dosage: 50 MG/500 MG BID
     Route: 048
     Dates: start: 20110311, end: 201211

REACTIONS (38)
  - Lymphadenopathy [Unknown]
  - Computerised tomogram abnormal [Unknown]
  - Platelet count decreased [Unknown]
  - Pericardial effusion [Unknown]
  - Splenectomy [Unknown]
  - Metastases to stomach [Unknown]
  - Haemorrhoids [Unknown]
  - Central venous catheterisation [Unknown]
  - Nephrolithiasis [Unknown]
  - Pancreatic carcinoma metastatic [Fatal]
  - Metastases to large intestine [Unknown]
  - Thoracostomy [Unknown]
  - Gastric ulcer [Unknown]
  - Hypertension [Unknown]
  - Renal cyst [Unknown]
  - Prostatomegaly [Unknown]
  - Metastases to spleen [Unknown]
  - Cardiac murmur [Unknown]
  - Hypercholesterolaemia [Unknown]
  - Metastases to peritoneum [Unknown]
  - Pancreatectomy [Unknown]
  - Pneumothorax [Unknown]
  - Arthritis [Unknown]
  - Depressed mood [Unknown]
  - Atelectasis [Unknown]
  - Peripheral nerve operation [Unknown]
  - Explorative laparotomy [Unknown]
  - Metastases to liver [Unknown]
  - Large intestine polyp [Unknown]
  - Pleural effusion [Unknown]
  - Pneumonia [Fatal]
  - Metastases to bone [Unknown]
  - Arteriosclerosis coronary artery [Unknown]
  - Lung infiltration [Unknown]
  - Drug ineffective [Unknown]
  - Rectal polyp [Unknown]
  - Emphysema [Unknown]
  - Atelectasis [Unknown]

NARRATIVE: CASE EVENT DATE: 201112
